FAERS Safety Report 10084680 (Version 1)
Quarter: 2014Q2

REPORT INFORMATION
  Report Type: Spontaneous
  Country: US (occurrence: US)
  Receive Date: 20140417
  Receipt Date: 20140417
  Transmission Date: 20141212
  Serious: Yes (Disabling, Other)
  Sender: FDA-Public Use
  Company Number: US-GLAXOSMITHKLINE-A1066913A

PATIENT
  Age: 61 Year
  Sex: Female
  Weight: 104.5 kg

DRUGS (2)
  1. CARVEDILOL [Suspect]
     Route: 048
     Dates: end: 20130326
  2. OMEPRAZOLE [Concomitant]

REACTIONS (4)
  - Speech disorder [Recovering/Resolving]
  - Dysphonia [Recovering/Resolving]
  - Dysarthria [Recovering/Resolving]
  - Gastrooesophageal reflux disease [Recovering/Resolving]
